FAERS Safety Report 7866265-9 (Version None)
Quarter: 2011Q4

REPORT INFORMATION
  Report Type: 
  Country: None (occurrence: None)
  Receive Date: 20111028
  Receipt Date: 20110520
  Transmission Date: 20120403
  Serious: No
  Sender: FDA-Public Use
  Company Number: US-GLAXOSMITHKLINE-A0928365A

PATIENT
  Age: 60 Year
  Sex: Male

DRUGS (11)
  1. PROVENTIL [Concomitant]
  2. PROCRIT [Concomitant]
  3. FLUCONAZOLE [Concomitant]
  4. EXJADE [Concomitant]
  5. BONIVA [Concomitant]
  6. ADVAIR DISKUS 100/50 [Suspect]
     Indication: CHRONIC OBSTRUCTIVE PULMONARY DISEASE
     Dosage: 1PUFF TWICE PER DAY
     Route: 055
     Dates: start: 20110515
  7. PROGRAF [Concomitant]
  8. ZOVIRAX [Concomitant]
  9. GABAPENTIN [Concomitant]
  10. QVAR 80 [Concomitant]
  11. NEXIUM [Concomitant]

REACTIONS (3)
  - OROPHARYNGEAL PAIN [None]
  - DRY MOUTH [None]
  - DYSPHONIA [None]
